FAERS Safety Report 8205263-2 (Version None)
Quarter: 2012Q1

REPORT INFORMATION
  Report Type: 
  Country: None (occurrence: None)
  Receive Date: 20120313
  Receipt Date: 20120301
  Transmission Date: 20120608
  Serious: Yes (Hospitalization)
  Sender: FDA-Public Use
  Company Number: DE-ROCHE-736101

PATIENT
  Sex: Female
  Weight: 70 kg

DRUGS (9)
  1. AVASTIN [Suspect]
     Indication: BREAST CANCER METASTATIC
     Dosage: DAY 1 AND 15 OF A CYCLE OF 4 WEEKS, 5 CYCLES, 10 APPLICATIONS RESPECTIVELY
     Route: 042
     Dates: start: 20100211, end: 20100614
  2. ZOLEDRONIC ACID [Suspect]
     Indication: BREAST CANCER METASTATIC
     Route: 042
  3. CORTICOSTEROID NOS [Concomitant]
     Dosage: GIVEN ON THE DAYS OF CHEMOTHERAPY
     Route: 048
  4. AVASTIN [Suspect]
     Dosage: DAY 1 AND 15 OF A CYCLE OF 4 WEEKS
     Route: 042
  5. ZOLEDRONIC ACID [Suspect]
     Route: 042
  6. METOPROLOL SUCCINATE [Concomitant]
     Indication: HYPERTENSION
     Route: 048
  7. RAMIPRIL [Concomitant]
     Indication: HYPERTENSION
     Route: 048
     Dates: start: 20100426, end: 20110210
  8. ZOLEDRONIC ACID [Suspect]
     Route: 042
  9. PACLITAXEL [Concomitant]
     Indication: BREAST CANCER METASTATIC
     Dosage: DAY 1, 8, 15 OF A CYCLE
     Route: 042
     Dates: start: 20100211, end: 20100906

REACTIONS (2)
  - TOOTH LOSS [None]
  - OSTEONECROSIS OF JAW [None]
